FAERS Safety Report 8973981 (Version 1)
Quarter: 2012Q4

REPORT INFORMATION
  Report Type: 
  Country: US (occurrence: US)
  Receive Date: 20121218
  Receipt Date: 20121218
  Transmission Date: 20130627
  Serious: No
  Sender: FDA-Public Use
  Company Number: US-BRISTOL-MYERS SQUIBB COMPANY-16397119

PATIENT
  Sex: Female

DRUGS (2)
  1. ABILIFY [Suspect]
     Indication: PARANOIA
     Dosage: Sometimes 20mg every morning
     Dates: start: 2003
  2. PRISTIQ [Concomitant]

REACTIONS (2)
  - Ear discomfort [Unknown]
  - Drug dose omission [Unknown]
